FAERS Safety Report 25121999 (Version 1)
Quarter: 2025Q1

REPORT INFORMATION
  Report Type: Spontaneous
  Country: DE (occurrence: DE)
  Receive Date: 20250326
  Receipt Date: 20250326
  Transmission Date: 20250409
  Serious: Yes (Hospitalization, Other)
  Sender: BOEHRINGER INGELHEIM
  Company Number: DE-Komodo Health-a23aa000006SH7JAAW

PATIENT
  Sex: Female

DRUGS (2)
  1. JARDIANCE [Suspect]
     Active Substance: EMPAGLIFLOZIN
     Indication: Type 2 diabetes mellitus
  2. METFORMIN [Concomitant]
     Active Substance: METFORMIN HYDROCHLORIDE
     Indication: Type 2 diabetes mellitus

REACTIONS (11)
  - Ketoacidosis [Unknown]
  - Tissue injury [Unknown]
  - Fatigue [Unknown]
  - Hyperhidrosis [Unknown]
  - Urine analysis [Unknown]
  - Genital pain [Unknown]
  - Genital swelling [Unknown]
  - Genital erythema [Unknown]
  - Vulvovaginal dryness [Unknown]
  - Swelling face [Unknown]
  - Rash [Unknown]
